FAERS Safety Report 8804894 (Version 1)
Quarter: 2012Q4

REPORT INFORMATION
  Report Type: Report from Study
  Country: CA (occurrence: CA)
  Receive Date: 20120924
  Receipt Date: 20120924
  Transmission Date: 20130627
  Serious: Yes (Other)
  Sender: FDA-Public Use
  Company Number: CA-ABBOTT-12P-028-0973802-00

PATIENT
  Age: 33 None
  Sex: Female

DRUGS (17)
  1. HUMIRA 40 MG/0.8 ML PEN [Suspect]
     Indication: CROHN^S DISEASE
     Route: 058
     Dates: start: 20090317
  2. ABILIFY [Concomitant]
     Indication: DEPRESSION
     Route: 048
     Dates: start: 20120815
  3. METHOTREXATE [Concomitant]
     Indication: CROHN^S DISEASE
     Route: 058
  4. HYDROMORPHONE [Concomitant]
     Indication: CROHN^S DISEASE
     Route: 048
  5. CESAMET [Concomitant]
     Indication: CROHN^S DISEASE
     Route: 048
  6. ZOPICLONE [Concomitant]
     Indication: CROHN^S DISEASE
     Route: 048
  7. CLONAZEPAM [Concomitant]
     Indication: CROHN^S DISEASE
     Route: 048
  8. ALESSE [Concomitant]
     Indication: CONTRACEPTION
     Route: 048
  9. MULTIVITAMIN [Concomitant]
     Indication: VITAMIN SUPPLEMENTATION
     Route: 048
  10. MAGNESIUM [Concomitant]
     Indication: MINERAL SUPPLEMENTATION
     Route: 048
  11. FOLIC ACID [Concomitant]
     Indication: VITAMIN SUPPLEMENTATION
     Route: 048
  12. VITAMIN D [Concomitant]
     Indication: VITAMIN SUPPLEMENTATION
     Route: 048
  13. CALCIUM [Concomitant]
     Indication: MINERAL SUPPLEMENTATION
     Route: 048
  14. MELATONIN [Concomitant]
     Indication: SUPPLEMENTATION THERAPY
     Route: 048
  15. GRAVOL [Concomitant]
     Indication: CROHN^S DISEASE
     Route: 048
  16. PANTOLOC [Concomitant]
     Indication: CROHN^S DISEASE
     Route: 048
  17. CEREFOLIN NAC [Concomitant]
     Indication: DEPRESSION
     Route: 048

REACTIONS (6)
  - Pulmonary embolism [Not Recovered/Not Resolved]
  - Depressed level of consciousness [Recovered/Resolved]
  - Hypersomnia [Recovered/Resolved]
  - Dyspnoea [Recovered/Resolved]
  - Loss of consciousness [Recovered/Resolved]
  - Weight fluctuation [Not Recovered/Not Resolved]
